FAERS Safety Report 15328687 (Version 1)
Quarter: 2018Q4

REPORT INFORMATION
  Report Type: Other
  Country: JP (occurrence: JP)
  Receive Date: 20180829
  Receipt Date: 20180829
  Transmission Date: 20190204
  Serious: Yes (Other)
  Sender: FDA-Public Use
  Company Number: JP-AMEL-2018-05875AA

PATIENT
  Age: 77 Year
  Sex: Male
  Weight: 70.4 kg

DRUGS (17)
  1. TIAPRIDE HCL 25 MG TABLET [Suspect]
     Active Substance: TIAPRIDE HYDROCHLORIDE
     Indication: PNEUMONIA
     Dosage: 25 MG, TID
     Route: 048
     Dates: start: 20180618
  2. POSTERISAN FORTE                   /01567801/ [Concomitant]
     Indication: PRODUCT USED FOR UNKNOWN INDICATION
     Dosage: UNK
     Route: 065
  3. SENNOSIDE                          /00571901/ [Concomitant]
     Active Substance: SENNOSIDES A AND B
     Indication: PRODUCT USED FOR UNKNOWN INDICATION
     Dosage: UNK
     Route: 065
  4. QUETIAPINE. [Suspect]
     Active Substance: QUETIAPINE
     Dosage: 25 MG-25 MG-100 MG
     Route: 048
     Dates: end: 20180625
  5. TIAPRIDE HCL 25 MG TABLET [Suspect]
     Active Substance: TIAPRIDE HYDROCHLORIDE
     Indication: RESTLESSNESS
  6. SERENACE [Concomitant]
     Active Substance: HALOPERIDOL
     Indication: PRODUCT USED FOR UNKNOWN INDICATION
     Route: 042
  7. AMLODIPINE                         /00972402/ [Concomitant]
     Active Substance: AMLODIPINE BESYLATE
     Indication: PRODUCT USED FOR UNKNOWN INDICATION
     Dosage: UNK
     Route: 065
  8. QUETIAPINE. [Suspect]
     Active Substance: QUETIAPINE
     Indication: RESTLESSNESS
     Dosage: 25 MG, TID
     Route: 048
     Dates: start: 20180613
  9. QUETIAPINE. [Suspect]
     Active Substance: QUETIAPINE
     Dosage: 25 MG, TID
     Route: 048
     Dates: start: 20180618
  10. ROZEREM [Concomitant]
     Active Substance: RAMELTEON
     Indication: RESTLESSNESS
     Dosage: 8 MG, UNK (BEFORE SLEEPING)
     Route: 065
  11. MAGMITT [Concomitant]
     Active Substance: MAGNESIUM OXIDE
     Indication: PRODUCT USED FOR UNKNOWN INDICATION
     Dosage: UNK
     Route: 065
  12. QUETIAPINE. [Suspect]
     Active Substance: QUETIAPINE
     Dosage: DOSE DECREASED
     Route: 048
     Dates: start: 20180614
  13. CONTOMIN                           /00011902/ [Concomitant]
     Active Substance: CHLORPROMAZINE HYDROCHLORIDE
     Indication: PRODUCT USED FOR UNKNOWN INDICATION
     Dosage: 25 MG, UNK
     Route: 065
  14. MAINTATE [Concomitant]
     Active Substance: BISOPROLOL FUMARATE
     Indication: PRODUCT USED FOR UNKNOWN INDICATION
     Dosage: UNK
     Route: 065
  15. QUETIAPINE. [Suspect]
     Active Substance: QUETIAPINE
     Dosage: 50 MG (DOSE INCREASED)
     Route: 048
     Dates: start: 20180615
  16. RIVOTRIL [Concomitant]
     Active Substance: CLONAZEPAM
     Indication: MYOCLONUS
     Dosage: 0.5 MG, BID
     Route: 065
  17. CONTOMIN                           /00011902/ [Concomitant]
     Active Substance: CHLORPROMAZINE HYDROCHLORIDE
     Dosage: 50 MG, UNK
     Route: 065

REACTIONS (2)
  - Blood creatine phosphokinase increased [Recovered/Resolved]
  - Hepatic function abnormal [Recovered/Resolved]

NARRATIVE: CASE EVENT DATE: 20180622
